FAERS Safety Report 7832100-8 (Version None)
Quarter: 2011Q4

REPORT INFORMATION
  Report Type: 
  Country: None (occurrence: None)
  Receive Date: 20111022
  Receipt Date: 20111011
  Transmission Date: 20120403
  Serious: Yes (Other)
  Sender: FDA-Public Use
  Company Number: US-BAYER-2011-019992

PATIENT
  Age: 25 Year
  Sex: Female

DRUGS (1)
  1. YAZ [Suspect]
     Indication: CONTRACEPTION
     Dosage: UNK
     Route: 048
     Dates: start: 20030101, end: 20051001

REACTIONS (5)
  - INJURY [None]
  - HYPERTENSION [None]
  - GALLBLADDER PAIN [None]
  - GALLBLADDER NON-FUNCTIONING [None]
  - PAIN [None]
